FAERS Safety Report 8571186-2 (Version None)
Quarter: 2012Q3

REPORT INFORMATION
  Report Type: 
  Country: None (occurrence: None)
  Receive Date: 20120806
  Receipt Date: 20120731
  Transmission Date: 20120928
  Serious: No
  Sender: FDA-Public Use
  Company Number: US-PFIZER INC-2012185968

PATIENT
  Age: 29 Year
  Sex: Female
  Weight: 54.42 kg

DRUGS (1)
  1. ADVIL MIGRAINE LIQUI-GELS [Suspect]
     Indication: HEADACHE
     Dosage: 200 MG, 1X/DAY
     Route: 048
     Dates: start: 20120730, end: 20120730

REACTIONS (6)
  - DYSPNOEA [None]
  - ERYTHEMA [None]
  - CHEST DISCOMFORT [None]
  - PAIN [None]
  - PRURITUS [None]
  - PAIN OF SKIN [None]
